FAERS Safety Report 6295627-9 (Version None)
Quarter: 2009Q3

REPORT INFORMATION
  Report Type: 
  Country: None (occurrence: None)
  Receive Date: 20090804
  Receipt Date: 20090728
  Transmission Date: 20100115
  Serious: Yes (Hospitalization)
  Sender: FDA-Public Use
  Company Number: US-BIOGENIDEC-2009BI016418

PATIENT
  Age: 52 Year
  Sex: Female

DRUGS (14)
  1. TYSABRI [Suspect]
     Indication: MULTIPLE SCLEROSIS
     Route: 042
     Dates: start: 20070629, end: 20090429
  2. REMERON [Concomitant]
     Indication: DEPRESSION
  3. REMERON [Concomitant]
     Dates: start: 20081028
  4. RESTASIS [Concomitant]
     Route: 047
  5. AVAPRO [Concomitant]
     Route: 048
  6. NAPROSYN [Concomitant]
     Route: 048
  7. PROZAC [Concomitant]
     Indication: DEPRESSION
     Route: 048
  8. PROZAC [Concomitant]
     Route: 048
     Dates: start: 20081028
  9. ZOCOR [Concomitant]
     Route: 048
  10. LEVOXYL [Concomitant]
     Route: 048
  11. DITROPAN XL [Concomitant]
     Route: 048
  12. NEURONTIN [Concomitant]
     Route: 048
  13. PROVIGIL [Concomitant]
     Route: 048
  14. REPLIVA [Concomitant]
     Route: 048

REACTIONS (7)
  - ABDOMINAL PAIN UPPER [None]
  - ANAEMIA [None]
  - COUGH [None]
  - FATIGUE [None]
  - GASTROOESOPHAGEAL REFLUX DISEASE [None]
  - PERICARDITIS [None]
  - SLEEP DISORDER [None]
